FAERS Safety Report 5971339-3 (Version None)
Quarter: 2008Q4

REPORT INFORMATION
  Report Type: 
  Country: None (occurrence: None)
  Receive Date: 20081128
  Receipt Date: 20081125
  Transmission Date: 20090506
  Serious: Yes (Death, Hospitalization)
  Sender: FDA-Public Use
  Company Number: US-PFIZER INC-2008099992

PATIENT
  Sex: Male

DRUGS (1)
  1. SUTENT [Suspect]
     Indication: RENAL CANCER METASTATIC
     Dates: start: 20080401

REACTIONS (2)
  - ENCEPHALITIS VIRAL [None]
  - ILL-DEFINED DISORDER [None]
